FAERS Safety Report 9695702 (Version 1)
Quarter: 2013Q4

REPORT INFORMATION
  Report Type: Spontaneous
  Country: US (occurrence: US)
  Receive Date: 20131119
  Receipt Date: 20131119
  Transmission Date: 20140711
  Serious: Yes (Other)
  Sender: FDA-Public Use
  Company Number: US-ABBVIE-13P-163-1170668-00

PATIENT
  Age: 59 Year
  Sex: Male
  Weight: 113.5 kg

DRUGS (3)
  1. ANDROGEL [Suspect]
     Indication: ANDROGEN DEFICIENCY
     Dosage: 4 PUMPS
     Route: 061
  2. ASPIRIN [Concomitant]
     Indication: ARTHRALGIA
  3. ALEVE [Concomitant]
     Indication: ARTHRALGIA

REACTIONS (3)
  - Deafness [Recovered/Resolved]
  - Deafness [Recovered/Resolved]
  - Viral infection [Unknown]
